FAERS Safety Report 17025933 (Version 1)
Quarter: 2019Q4

REPORT INFORMATION
  Report Type: Spontaneous
  Country: US (occurrence: US)
  Receive Date: 20191112
  Receipt Date: 20191112
  Transmission Date: 20200122
  Serious: Yes (Other)
  Sender: FDA-Public Use
  Company Number: None

PATIENT
  Age: 39 Year
  Sex: Male

DRUGS (9)
  1. PROBIOTIC [Concomitant]
     Active Substance: PROBIOTICS NOS
  2. VITAMIN B [Concomitant]
     Active Substance: VITAMIN B
  3. TRAMADOL. [Concomitant]
     Active Substance: TRAMADOL
  4. SINGULAIR [Concomitant]
     Active Substance: MONTELUKAST SODIUM
  5. MULTIVITAMIN [Concomitant]
     Active Substance: VITAMINS
  6. PREDNISONE. [Concomitant]
     Active Substance: PREDNISONE
  7. HUMIRA [Suspect]
     Active Substance: ADALIMUMAB
     Indication: ANKYLOSING SPONDYLITIS
     Dosage: ?          OTHER FREQUENCY:Q WEEK;?
     Route: 058
     Dates: start: 20170928
  8. ALLOPURINOL. [Concomitant]
     Active Substance: ALLOPURINOL
  9. TYLENOL [Concomitant]
     Active Substance: ACETAMINOPHEN

REACTIONS (1)
  - Neoplasm malignant [None]
